FAERS Safety Report 10299939 (Version 1)
Quarter: 2014Q3

REPORT INFORMATION
  Report Type: Report from Study
  Country: BR (occurrence: BR)
  Receive Date: 20140711
  Receipt Date: 20140711
  Transmission Date: 20150326
  Serious: Yes (Hospitalization, Disabling, Other)
  Sender: FDA-Public Use
  Company Number: BR-ABBVIE-14P-020-1256214-00

PATIENT
  Sex: Male
  Weight: 65 kg

DRUGS (1)
  1. HUMIRA [Suspect]
     Active Substance: ADALIMUMAB
     Indication: CROHN^S DISEASE
     Route: 058
     Dates: start: 2009

REACTIONS (9)
  - Road traffic accident [Recovered/Resolved with Sequelae]
  - Pneumonia [Recovering/Resolving]
  - Cough [Recovering/Resolving]
  - Thrombosis [Recovered/Resolved]
  - Convulsion [Recovered/Resolved]
  - Convulsion [Recovered/Resolved]
  - Bedridden [Not Recovered/Not Resolved]
  - Aphasia [Not Recovered/Not Resolved]
  - Secretion discharge [Recovering/Resolving]

NARRATIVE: CASE EVENT DATE: 2013
